FAERS Safety Report 19089981 (Version 1)
Quarter: 2021Q2

REPORT INFORMATION
  Report Type: Spontaneous
  Country: TW (occurrence: TW)
  Receive Date: 20210404
  Receipt Date: 20210404
  Transmission Date: 20210717
  Serious: Yes (Hospitalization)
  Sender: FDA-Public Use
  Company Number: TW-LUPIN PHARMACEUTICALS INC.-2021-04063

PATIENT
  Age: 28 Year
  Sex: Female
  Weight: 47 kg

DRUGS (7)
  1. PSEUDOEPHEDRINE. [Suspect]
     Active Substance: PSEUDOEPHEDRINE HYDROCHLORIDE
     Indication: OBESITY
     Dosage: UNK
     Route: 065
  2. METFORMIN [Suspect]
     Active Substance: METFORMIN HYDROCHLORIDE
     Indication: OBESITY
     Dosage: UNK
     Route: 065
  3. FLUOXETINE [Suspect]
     Active Substance: FLUOXETINE HYDROCHLORIDE
     Indication: OBESITY
     Dosage: UNK
     Route: 065
  4. TOPIRAMAT [Suspect]
     Active Substance: TOPIRAMATE
     Indication: OBESITY
     Dosage: UNK
     Route: 065
  5. TRIIODOTHYRONINE [Suspect]
     Active Substance: LIOTHYRONINE SODIUM
     Indication: OBESITY
     Dosage: UNK
     Route: 065
  6. HYDROCHLOROTHIAZIDE. [Suspect]
     Active Substance: HYDROCHLOROTHIAZIDE
     Indication: OBESITY
     Dosage: UNK
     Route: 065
  7. OXAZOLAM [Suspect]
     Active Substance: OXAZOLAM
     Indication: OBESITY
     Dosage: UNK
     Route: 065

REACTIONS (1)
  - Myopathy [Recovered/Resolved]
